FAERS Safety Report 24938952 (Version 2)
Quarter: 2025Q1

REPORT INFORMATION
  Report Type: Spontaneous
  Country: RU (occurrence: RU)
  Receive Date: 20250206
  Receipt Date: 20250224
  Transmission Date: 20250408
  Serious: Yes (Death, Other)
  Sender: MERCK SHARP & DOHME LLC
  Company Number: None

PATIENT
  Age: 71 Year
  Sex: Male

DRUGS (12)
  1. KEYTRUDA [Suspect]
     Active Substance: PEMBROLIZUMAB
     Indication: Non-small cell lung cancer
     Dosage: DOSE DESCRIPTION : 200 MG, ONCE EVERY 3 WEEKS?DAILY DOSE : 9.4 MILLIGRAM?REGIMEN DOSE : 600  MILL...
     Route: 042
     Dates: start: 20241210, end: 20250123
  2. PEMETREXED [Suspect]
     Active Substance: PEMETREXED
     Indication: Non-small cell lung cancer
     Dosage: DOSE DESCRIPTION : 764 MILLIGRAM, Q3W?DAILY DOSE : 35.908 MILLIGRAM?REGIMEN DOSE : 2292  MILLIGRAM
     Route: 042
     Dates: start: 20241210, end: 20250123
  3. CARBOPLATIN [Suspect]
     Active Substance: CARBOPLATIN
     Indication: Non-small cell lung cancer
     Dosage: DOSE DESCRIPTION : 361 MILLIGRAM, Q3W?DAILY DOSE : 16.967 MILLIGRAM?REGIMEN DOSE : 361  MILLIGRAM
     Route: 042
     Dates: start: 20241210, end: 20241230
  4. CARBOPLATIN [Suspect]
     Active Substance: CARBOPLATIN
     Indication: Non-small cell lung cancer
     Dosage: DOSE DESCRIPTION : 441.2 UNK
     Route: 042
     Dates: start: 20250123, end: 20250123
  5. FOLIC ACID [Concomitant]
     Active Substance: FOLIC ACID
     Dosage: DOSE DESCRIPTION : 1000 MICROGRAM, QD?DAILY DOSE : 1000 MICROGRAM?REGIMEN DOSE : 59000  MICROGRAM
     Route: 048
     Dates: start: 20241202, end: 20250129
  6. DEXAMETHASONE [Concomitant]
     Active Substance: DEXAMETHASONE
     Dosage: DOSE DESCRIPTION : 4 MILLIGRAM, QD?DAILY DOSE : 4 MILLIGRAM?REGIMEN DOSE : 12  MILLIGRAM
     Route: 048
     Dates: start: 20241209, end: 20241211
  7. DEXAMETHASONE [Concomitant]
     Active Substance: DEXAMETHASONE
     Dosage: DOSE DESCRIPTION : 4 MILLIGRAM, QD?DAILY DOSE : 4 MILLIGRAM?REGIMEN DOSE : 12  MILLIGRAM
     Route: 048
     Dates: start: 20241229, end: 20241231
  8. DEXAMETHASONE [Concomitant]
     Active Substance: DEXAMETHASONE
     Dosage: DOSE DESCRIPTION : 4 MILLIGRAM, QD?DAILY DOSE : 4 MILLIGRAM?REGIMEN DOSE : 12  MILLIGRAM
     Route: 048
     Dates: start: 20250122, end: 20250124
  9. VITAMIN B12 [Concomitant]
     Active Substance: CYANOCOBALAMIN
     Route: 030
     Dates: start: 20241209, end: 20241209
  10. MORPHINE [Concomitant]
     Active Substance: MORPHINE
     Route: 058
     Dates: start: 20241216, end: 20241216
  11. MORPHINE [Concomitant]
     Active Substance: MORPHINE
     Route: 058
     Dates: start: 20241218, end: 20241218
  12. DEXAMETHASONE [Concomitant]
     Active Substance: DEXAMETHASONE
     Route: 042
     Dates: start: 20241218, end: 20241218

REACTIONS (1)
  - Acute respiratory failure [Fatal]

NARRATIVE: CASE EVENT DATE: 20250129
